FAERS Safety Report 14761639 (Version 2)
Quarter: 2018Q2

REPORT INFORMATION
  Report Type: Spontaneous
  Country: US (occurrence: US)
  Receive Date: 20180416
  Receipt Date: 20180420
  Transmission Date: 20180711
  Serious: No
  Sender: FDA-Public Use
  Company Number: PHEH2018US014289

PATIENT
  Sex: Female

DRUGS (1)
  1. GILENYA [Suspect]
     Active Substance: FINGOLIMOD HYDROCHLORIDE
     Indication: PRODUCT USED FOR UNKNOWN INDICATION
     Dosage: UNK
     Route: 065

REACTIONS (9)
  - Multiple sclerosis relapse [Unknown]
  - Aphasia [Unknown]
  - Pain [Unknown]
  - Gait disturbance [Unknown]
  - Migraine [Unknown]
  - Hypertension [Unknown]
  - Abdominal discomfort [Unknown]
  - Asthenia [Unknown]
  - Muscular weakness [Unknown]
